FAERS Safety Report 15237750 (Version 1)
Quarter: 2018Q3

REPORT INFORMATION
  Report Type: Spontaneous
  Country: BG (occurrence: BG)
  Receive Date: 20180803
  Receipt Date: 20180803
  Transmission Date: 20181010
  Serious: Yes (Hospitalization)
  Sender: FDA-Public Use
  Company Number: BG-TEVA-2018-BG-938370

PATIENT
  Age: 3 Decade
  Sex: Male

DRUGS (2)
  1. IRBESARTAN W/HYDROCHLOROTHIAZIDE [Suspect]
     Active Substance: HYDROCHLOROTHIAZIDE\IRBESARTAN
     Indication: HYPERTENSION
     Dosage: 150 MG IRBESARTAN /12.5 MG HYDROCHLOROTHIAZIDE, ONCE DAILY IN THE MORNING
     Route: 065
  2. ASPIRIN. [Suspect]
     Active Substance: ASPIRIN
     Indication: HYPERTENSION
     Dosage: 100 MILLIGRAM DAILY; IN THE EVENING
     Route: 065

REACTIONS (1)
  - Psoriasis [Unknown]
